FAERS Safety Report 7538335-6 (Version None)
Quarter: 2011Q2

REPORT INFORMATION
  Report Type: 
  Country: None (occurrence: None)
  Receive Date: 20110609
  Receipt Date: 20070328
  Transmission Date: 20111010
  Serious: Yes (Death)
  Sender: FDA-Public Use
  Company Number: PHMT2007CA00848

PATIENT
  Sex: Male

DRUGS (7)
  1. ZOLOFT [Concomitant]
     Dosage: 200 MG, UNK
  2. CLOZAPINE [Suspect]
     Indication: SCHIZOPHRENIA, PARANOID TYPE
     Dosage: 50 MG, TID
     Route: 048
     Dates: start: 20060201
  3. DILAUDID [Concomitant]
     Dosage: 1 MG, QID
     Route: 048
  4. CLONAZEPAM [Concomitant]
     Dosage: 1 MG, TID
     Route: 048
  5. CLOZAPINE [Suspect]
     Dosage: 600 MG, QHS
     Route: 048
     Dates: start: 20060201, end: 20070307
  6. NEURONTIN [Concomitant]
     Dosage: 600 MG, QID
     Route: 048
  7. CLONAZEPAM [Concomitant]
     Dosage: 6 MG, QHS
     Route: 048

REACTIONS (1)
  - DEATH [None]
